FAERS Safety Report 15109125 (Version 1)
Quarter: 2018Q3

REPORT INFORMATION
  Report Type: Spontaneous
  Country: FR (occurrence: FR)
  Receive Date: 20180705
  Receipt Date: 20180705
  Transmission Date: 20181010
  Serious: Yes (Life-Threatening, Hospitalization)
  Sender: FDA-Public Use
  Company Number: FR-SUN PHARMACEUTICAL INDUSTRIES LTD-2018RR-177481

PATIENT
  Age: 18 Year
  Sex: Female

DRUGS (4)
  1. PARACETAMOL [Suspect]
     Active Substance: ACETAMINOPHEN
     Indication: TOXICITY TO VARIOUS AGENTS
     Dosage: UNK
     Route: 048
     Dates: start: 20180529
  2. NEBIVOLOL. [Suspect]
     Active Substance: NEBIVOLOL
     Indication: POISONING
     Dosage: ()
     Route: 048
     Dates: start: 20180528
  3. SURGAM [Suspect]
     Active Substance: TIAPROFENIC ACID
     Indication: POISONING
     Dosage: ()
     Route: 048
     Dates: start: 20180528
  4. LORAZEPAM. [Suspect]
     Active Substance: LORAZEPAM
     Indication: POISONING
     Dosage: ()
     Route: 048
     Dates: start: 20180528

REACTIONS (4)
  - Nausea [Recovered/Resolved]
  - Somnolence [Recovered/Resolved]
  - Abdominal pain [Recovered/Resolved]
  - Bradycardia [Recovered/Resolved]

NARRATIVE: CASE EVENT DATE: 20180529
